FAERS Safety Report 7742064-3 (Version None)
Quarter: 2011Q3

REPORT INFORMATION
  Report Type: 
  Country: None (occurrence: None)
  Receive Date: 20110912
  Receipt Date: 20110905
  Transmission Date: 20111222
  Serious: Yes (Other)
  Sender: FDA-Public Use
  Company Number: PHHY2011FR79360

PATIENT
  Sex: Male

DRUGS (4)
  1. CASODEX [Concomitant]
     Indication: PROSTATE CANCER
     Dosage: 1 DF, QD
     Dates: start: 20110113, end: 20110128
  2. LEUPROLIDE ACETATE [Concomitant]
     Indication: PROSTATE CANCER
     Dates: start: 20110128
  3. CASODEX [Concomitant]
     Dosage: 1 DF, QD
     Dates: start: 20110207, end: 20110221
  4. ZOMETA [Suspect]
     Indication: METASTASES TO BONE
     Dates: start: 20110228

REACTIONS (4)
  - CELL DEATH [None]
  - ALANINE AMINOTRANSFERASE INCREASED [None]
  - CHOLESTASIS [None]
  - GAMMA-GLUTAMYLTRANSFERASE INCREASED [None]
